FAERS Safety Report 20150382 (Version 1)
Quarter: 2021Q4

REPORT INFORMATION
  Report Type: Spontaneous
  Country: US (occurrence: US)
  Receive Date: 20211206
  Receipt Date: 20211206
  Transmission Date: 20220303
  Serious: Yes (Other)
  Sender: FDA-Public Use
  Company Number: US-drreddys-LIT/USA/21/0144497

PATIENT
  Sex: Male

DRUGS (6)
  1. PRIMIDONE [Suspect]
     Active Substance: PRIMIDONE
     Indication: Condition aggravated
  2. PRIMIDONE [Suspect]
     Active Substance: PRIMIDONE
     Indication: Postural tremor
  3. PROPRANOLOL [Suspect]
     Active Substance: PROPRANOLOL HYDROCHLORIDE
     Indication: Condition aggravated
  4. PROPRANOLOL [Suspect]
     Active Substance: PROPRANOLOL HYDROCHLORIDE
     Indication: Postural tremor
  5. GABAPENTIN [Suspect]
     Active Substance: GABAPENTIN
     Indication: Condition aggravated
  6. GABAPENTIN [Suspect]
     Active Substance: GABAPENTIN
     Indication: Postural tremor

REACTIONS (2)
  - Loss of personal independence in daily activities [Unknown]
  - Drug ineffective [Unknown]
